FAERS Safety Report 23183005 (Version 3)
Quarter: 2023Q4

REPORT INFORMATION
  Report Type: Spontaneous
  Country: US (occurrence: US)
  Receive Date: 20231114
  Receipt Date: 20231117
  Transmission Date: 20240110
  Serious: No
  Sender: FDA-Public Use
  Company Number: US-SANOFI-01828270

PATIENT
  Age: 83 Year
  Sex: Male

DRUGS (1)
  1. DUPIXENT [Suspect]
     Active Substance: DUPILUMAB
     Indication: Dermatitis atopic
     Dosage: UNK
     Route: 058
     Dates: start: 202309

REACTIONS (4)
  - Injection site mass [Recovering/Resolving]
  - Pruritus [Recovering/Resolving]
  - Injection site erythema [Recovering/Resolving]
  - Device use error [Recovering/Resolving]
